FAERS Safety Report 19655624 (Version 1)
Quarter: 2021Q3

REPORT INFORMATION
  Report Type: Spontaneous
  Country: CA (occurrence: CA)
  Receive Date: 20210803
  Receipt Date: 20210803
  Transmission Date: 20211014
  Serious: No
  Sender: FDA-Public Use
  Company Number: None

PATIENT
  Age: 39 Year
  Sex: Female

DRUGS (2)
  1. BUPROPION XL 300 MG [Suspect]
     Active Substance: BUPROPION
     Indication: AFFECTIVE DISORDER
     Dosage: ?          QUANTITY:300 CAPSULE(S);?
     Route: 048
     Dates: start: 20201216, end: 20210803
  2. BUPROPION XL 300 MG [Suspect]
     Active Substance: BUPROPION
     Indication: DEPRESSION
     Dosage: ?          QUANTITY:300 CAPSULE(S);?
     Route: 048
     Dates: start: 20201216, end: 20210803

REACTIONS (1)
  - Alopecia [None]

NARRATIVE: CASE EVENT DATE: 20210803
